APPROVED DRUG PRODUCT: GUAIFENESIN AND DEXTROMETHORPHAN HYDROBROMIDE
Active Ingredient: DEXTROMETHORPHAN HYDROBROMIDE; GUAIFENESIN
Strength: 30MG;600MG
Dosage Form/Route: TABLET, EXTENDED RELEASE;ORAL
Application: A214781 | Product #001
Applicant: SUN PHARMACEUTICAL INDUSTRIES LTD
Approved: Jul 1, 2021 | RLD: No | RS: No | Type: OTC